FAERS Safety Report 22164310 (Version 6)
Quarter: 2025Q1

REPORT INFORMATION
  Report Type: Report from Study
  Country: JP (occurrence: JP)
  Receive Date: 20230403
  Receipt Date: 20250325
  Transmission Date: 20250409
  Serious: Yes (Hospitalization, Other)
  Sender: TAKEDA
  Company Number: JP-TAKEDA-2023TJP003990

PATIENT
  Age: 86 Year
  Sex: Male

DRUGS (5)
  1. VONICOG ALFA [Suspect]
     Active Substance: VONICOG ALFA
     Indication: Von Willebrand^s disease
     Dates: start: 20230227, end: 20230227
  2. VONICOG ALFA [Suspect]
     Active Substance: VONICOG ALFA
     Dates: start: 20230228, end: 20230228
  3. VONICOG ALFA [Suspect]
     Active Substance: VONICOG ALFA
     Dates: start: 20230328, end: 20230328
  4. VONICOG ALFA [Suspect]
     Active Substance: VONICOG ALFA
     Dates: start: 20230417, end: 20230417
  5. VONICOG ALFA [Suspect]
     Active Substance: VONICOG ALFA
     Dates: start: 20231008, end: 20231008

REACTIONS (1)
  - Gastrointestinal haemorrhage [Recovered/Resolved]

NARRATIVE: CASE EVENT DATE: 20230327
